FAERS Safety Report 7340242-9 (Version None)
Quarter: 2011Q1

REPORT INFORMATION
  Report Type: 
  Country: None (occurrence: None)
  Receive Date: 20110309
  Receipt Date: 20110223
  Transmission Date: 20110831
  Serious: Yes (Hospitalization, Other)
  Sender: FDA-Public Use
  Company Number: PHHY2010BR46517

PATIENT
  Age: 65 Year
  Sex: Female

DRUGS (8)
  1. DIOVAN HCT [Suspect]
     Indication: HYPERTENSION
     Dosage: 1 DF, QD (1 TABLET AT NIGHT)
     Route: 048
  2. ATENOLOL [Concomitant]
     Indication: HYPERTENSION
     Dosage: 100 MG, 1 TABLET IN THE MORNING
     Route: 048
  3. GLUCOSAMINE SULFATE W/CHONDROITIN SULFATE /MSM [Concomitant]
     Indication: OSTEOARTHRITIS
     Dosage: 1SACHET DAILY
  4. LISINOPRIL [Concomitant]
     Indication: HYPERTENSION
     Dosage: 1 TABLET DURING LUNCH
  5. NISULID [Concomitant]
     Indication: MUSCULOSKELETAL PAIN
     Dosage: 1 DF, BID( 1 CAPSULE BID (MORNING AND NIGHT))
  6. DIOVAN [Suspect]
     Indication: HYPERTENSION
     Dosage: 160 MG IN THE MORNING
     Route: 048
     Dates: start: 20100201
  7. ATENSINE [Concomitant]
     Indication: HYPERTENSION
     Dosage: 100MG, 1 TABLET DAILY
     Route: 048
  8. PRELONE [Concomitant]
     Indication: MUSCULOSKELETAL PAIN
     Dosage: 20MG, 1 TABLET DAILY
     Route: 048

REACTIONS (7)
  - HYPERTENSION [None]
  - WEIGHT DECREASED [None]
  - FALL [None]
  - OSTEOARTHRITIS [None]
  - MENISCUS LESION [None]
  - INFLAMMATION [None]
  - TENDON DISORDER [None]
